FAERS Safety Report 9180619 (Version 2)
Quarter: 2013Q1

REPORT INFORMATION
  Report Type: Spontaneous
  Country: GB (occurrence: None)
  Receive Date: 20130320
  Receipt Date: 20130322
  Transmission Date: 20140127
  Serious: Yes (Hospitalization)
  Sender: FDA-Public Use
  Company Number: 2013-04764

PATIENT
  Age: 46 Year
  Sex: Female

DRUGS (2)
  1. ACETAMINOPHEN-CODEINE PHOSPHATE [Suspect]
     Indication: ARTHRALGIA
     Dosage: 2 SF 1 INTERVAL , ORAL
     Route: 048
     Dates: start: 20130223, end: 20130223
  2. ETOPAN XL (ETODOLAC) [Concomitant]

REACTIONS (3)
  - Abdominal pain upper [None]
  - Vomiting [None]
  - Malaise [None]
